FAERS Safety Report 7525452-X (Version None)
Quarter: 2011Q2

REPORT INFORMATION
  Report Type: 
  Country: None (occurrence: None)
  Receive Date: 20110606
  Receipt Date: 20110531
  Transmission Date: 20111010
  Serious: Yes (Hospitalization)
  Sender: FDA-Public Use
  Company Number: US-ACTELION-A-US2011-49612

PATIENT

DRUGS (2)
  1. TRACLEER [Suspect]
     Indication: VENOUS PRESSURE INCREASED
     Dosage: 125 MG, BID
     Route: 048
     Dates: start: 20101029, end: 20110325
  2. TRACLEER [Suspect]
     Dosage: 62.5 MG, BID
     Route: 048
     Dates: start: 20100929, end: 20101028

REACTIONS (5)
  - RIGHT VENTRICULAR FAILURE [None]
  - DYSPNOEA [None]
  - OEDEMA [None]
  - PANCYTOPENIA [None]
  - CATHETERISATION CARDIAC [None]
